FAERS Safety Report 11863581 (Version 4)
Quarter: 2016Q1

REPORT INFORMATION
  Report Type: Report from Study
  Country: CA (occurrence: CA)
  Receive Date: 20151223
  Receipt Date: 20160324
  Transmission Date: 20160526
  Serious: Yes (Hospitalization, Other)
  Sender: FDA-Public Use
  Company Number: PHHY2015CA164719

PATIENT
  Age: 57 Year
  Sex: Male

DRUGS (1)
  1. COSENTYX [Suspect]
     Active Substance: SECUKINUMAB
     Indication: PSORIASIS
     Dosage: 300 MG, QMO
     Route: 058
     Dates: start: 20151116

REACTIONS (12)
  - Sepsis [Unknown]
  - Circulatory collapse [Unknown]
  - Skin plaque [Unknown]
  - Impaired healing [Unknown]
  - Malaise [Unknown]
  - Gallbladder enlargement [Unknown]
  - Coma [Unknown]
  - Gastric disorder [Unknown]
  - Hyperphagia [Unknown]
  - Cellulitis [Unknown]
  - Stress [Unknown]
  - Depressed mood [Unknown]

NARRATIVE: CASE EVENT DATE: 20151218
